FAERS Safety Report 24040964 (Version 1)
Quarter: 2024Q3

REPORT INFORMATION
  Report Type: Spontaneous
  Country: BR (occurrence: BR)
  Receive Date: 20240702
  Receipt Date: 20240702
  Transmission Date: 20241017
  Serious: Yes (Other)
  Sender: JOHNSON AND JOHNSON
  Company Number: BR-BAYER-2024A094497

PATIENT
  Sex: Female

DRUGS (1)
  1. VENTAVIS [Suspect]
     Active Substance: ILOPROST
     Indication: Pulmonary arterial hypertension
     Dosage: 1 MG PER INHALATION, AS INDICATED ON THE PACKAGE LEAFLET, AND MEDICAL SUPERVISION
     Route: 055

REACTIONS (1)
  - Cataract [Unknown]
